FAERS Safety Report 7864531-4 (Version None)
Quarter: 2011Q4

REPORT INFORMATION
  Report Type: 
  Country: None (occurrence: None)
  Receive Date: 20111028
  Receipt Date: 20111025
  Transmission Date: 20120403
  Serious: No
  Sender: FDA-Public Use
  Company Number: US-PFIZER INC-2011261396

PATIENT
  Sex: Female
  Weight: 56.236 kg

DRUGS (4)
  1. LYRICA [Suspect]
     Indication: HERPES ZOSTER
     Dosage: UNK, 2X/DAY
     Dates: start: 20090101
  2. LASIX [Concomitant]
     Dosage: UNK
  3. DIOVAN [Concomitant]
     Indication: BLOOD PRESSURE ABNORMAL
     Dosage: 5 MG, DAILY
  4. LYRICA [Suspect]
     Indication: PULMONARY VALVE STENOSIS
     Dosage: UNK

REACTIONS (2)
  - ABDOMINAL DISTENSION [None]
  - WEIGHT INCREASED [None]
